FAERS Safety Report 6929864-4 (Version None)
Quarter: 2010Q3

REPORT INFORMATION
  Report Type: 
  Country: None (occurrence: None)
  Receive Date: 20100818
  Receipt Date: 20100812
  Transmission Date: 20110219
  Serious: Yes (Death, Hospitalization)
  Sender: FDA-Public Use
  Company Number: US-SANOFI-AVENTIS-2010SA047525

PATIENT
  Age: 71 Year
  Sex: Male
  Weight: 74.1 kg

DRUGS (7)
  1. JEVTANA [Suspect]
     Indication: PROSTATE CANCER
     Route: 042
     Dates: start: 20100726, end: 20100726
  2. NEUPOGEN [Concomitant]
     Dosage: FOURTH AND FINAL DOSE GIVEN 30-JUL-2010
     Dates: start: 20100701, end: 20100730
  3. ALOXI [Concomitant]
     Indication: PREMEDICATION
  4. PEPCID [Concomitant]
     Indication: PREMEDICATION
  5. DIPHENHYDRAMINE [Concomitant]
     Indication: PREMEDICATION
  6. DEXAMETHASONE [Concomitant]
  7. MS CONTIN [Concomitant]

REACTIONS (4)
  - DEATH [None]
  - FEELING ABNORMAL [None]
  - PNEUMONIA [None]
  - SEPSIS [None]
